FAERS Safety Report 11339210 (Version 1)
Quarter: 2015Q3

REPORT INFORMATION
  Report Type: Spontaneous
  Country: US (occurrence: US)
  Receive Date: 20150803
  Receipt Date: 20150803
  Transmission Date: 20151125
  Serious: No
  Sender: FDA-Public Use
  Company Number: US-ELI_LILLY_AND_COMPANY-US200908002101

PATIENT
  Sex: Female

DRUGS (1)
  1. STRATTERA [Suspect]
     Active Substance: ATOMOXETINE HYDROCHLORIDE
     Indication: ATTENTION DEFICIT/HYPERACTIVITY DISORDER
     Dosage: 103 MG, DAILY (1/D)
     Route: 065
     Dates: start: 20090608, end: 20090626

REACTIONS (2)
  - Rash [Recovered/Resolved]
  - Emotional poverty [Recovered/Resolved]

NARRATIVE: CASE EVENT DATE: 20090610
